FAERS Safety Report 14313513 (Version 1)
Quarter: 2017Q4

REPORT INFORMATION
  Report Type: Spontaneous
  Country: US (occurrence: US)
  Receive Date: 20171221
  Receipt Date: 20171221
  Transmission Date: 20180321
  Serious: Yes (Other)
  Sender: FDA-Public Use
  Company Number: US-GLAXOSMITHKLINE-US2017196947

PATIENT
  Sex: Female

DRUGS (1)
  1. ANORO ELLIPTA [Suspect]
     Active Substance: UMECLIDINIUM BROMIDE\VILANTEROL TRIFENATATE
     Indication: CHRONIC OBSTRUCTIVE PULMONARY DISEASE
     Dosage: 1 PUFF(S), QD
     Dates: start: 20171212, end: 20171215

REACTIONS (23)
  - Arthralgia [Recovering/Resolving]
  - Muscle spasms [Unknown]
  - Therapeutic response unexpected [Unknown]
  - Dyspnoea [Not Recovered/Not Resolved]
  - Myalgia [Recovering/Resolving]
  - Condition aggravated [Recovering/Resolving]
  - Nasopharyngitis [Unknown]
  - Swelling face [Recovered/Resolved]
  - Erythema [Not Recovered/Not Resolved]
  - Sinus congestion [Unknown]
  - Vascular injury [Not Recovered/Not Resolved]
  - Nausea [Recovering/Resolving]
  - Pain in extremity [Not Recovered/Not Resolved]
  - Sneezing [Unknown]
  - Cough [Unknown]
  - Swollen tongue [Recovered/Resolved]
  - Joint swelling [Not Recovered/Not Resolved]
  - Fibromyalgia [Unknown]
  - Tongue biting [Unknown]
  - Neck pain [Recovering/Resolving]
  - Peripheral swelling [Not Recovered/Not Resolved]
  - Pulmonary congestion [Unknown]
  - Headache [Recovering/Resolving]

NARRATIVE: CASE EVENT DATE: 20171214
